FAERS Safety Report 8775237 (Version 2)
Quarter: 2014Q3

REPORT INFORMATION
  Report Type: Spontaneous
  Country: US (occurrence: US)
  Receive Date: 20120910
  Receipt Date: 20140711
  Transmission Date: 20150326
  Serious: Yes (Hospitalization, Other)
  Sender: FDA-Public Use
  Company Number: US-009507513-2011SP026441

PATIENT
  Sex: Female
  Weight: 110.22 kg

DRUGS (3)
  1. NUVARING [Suspect]
     Active Substance: ETHINYL ESTRADIOL\ETONOGESTREL
     Dates: start: 200405, end: 20070910
  2. NUVARING [Suspect]
     Active Substance: ETHINYL ESTRADIOL\ETONOGESTREL
     Dates: start: 20080703, end: 20090626
  3. NUVARING [Suspect]
     Active Substance: ETHINYL ESTRADIOL\ETONOGESTREL
     Indication: CONTRACEPTION
     Dates: start: 200606, end: 20090626

REACTIONS (31)
  - Intervertebral disc degeneration [Unknown]
  - Lipoma of breast [Unknown]
  - Pelvic pain [Unknown]
  - Narcolepsy [Unknown]
  - Metrorrhagia [Unknown]
  - Blood cholesterol increased [Unknown]
  - Incorrect drug administration duration [Recovered/Resolved]
  - Diarrhoea [Recovered/Resolved]
  - Abdominal pain [Recovered/Resolved]
  - Pulmonary embolism [Recovered/Resolved]
  - Gastrooesophageal reflux disease [Unknown]
  - Irritable bowel syndrome [Unknown]
  - Gastritis erosive [Unknown]
  - Adenoma benign [Unknown]
  - Vomiting [Recovered/Resolved]
  - Nausea [Recovered/Resolved]
  - Deep vein thrombosis [Unknown]
  - Sinusitis [Unknown]
  - C-reactive protein increased [Unknown]
  - Fibromyalgia [Unknown]
  - Snoring [Unknown]
  - Hypercoagulation [Unknown]
  - Dissociation [Unknown]
  - Intervertebral disc disorder [Unknown]
  - Weight decreased [Unknown]
  - Early satiety [Unknown]
  - Abnormal weight gain [Unknown]
  - Headache [Not Recovered/Not Resolved]
  - Spinal osteoarthritis [Unknown]
  - Intervertebral disc protrusion [Unknown]
  - Constipation [Recovered/Resolved]

NARRATIVE: CASE EVENT DATE: 200506
